FAERS Safety Report 16141597 (Version 1)
Quarter: 2019Q2

REPORT INFORMATION
  Report Type: Spontaneous
  Country: US (occurrence: US)
  Receive Date: 20190327
  Receipt Date: 20190327
  Transmission Date: 20190711
  Serious: No
  Sender: FDA-Public Use
  Company Number: None

PATIENT
  Age: 53 Year
  Sex: Male
  Weight: 90 kg

DRUGS (1)
  1. UP AND UP NASAL [Suspect]
     Active Substance: OXYMETAZOLINE HYDROCHLORIDE
     Indication: SINUS CONGESTION
     Route: 055
     Dates: start: 20190326, end: 20190326

REACTIONS (2)
  - Rhinalgia [None]
  - Product use complaint [None]

NARRATIVE: CASE EVENT DATE: 20190326
